FAERS Safety Report 16192940 (Version 2)
Quarter: 2019Q2

REPORT INFORMATION
  Report Type: Report from Study
  Country: None (occurrence: US)
  Receive Date: 20190413
  Receipt Date: 20190415
  Transmission Date: 20190711
  Serious: Yes (Hospitalization, Other)
  Sender: FDA-Public Use
  Company Number: US-ABBVIE-19K-163-2743450-00

PATIENT
  Age: 68 Year
  Sex: Male

DRUGS (3)
  1. VENCLEXTA [Suspect]
     Active Substance: VENETOCLAX
     Route: 048
     Dates: start: 2019
  2. VENCLEXTA [Suspect]
     Active Substance: VENETOCLAX
     Indication: MYELODYSPLASTIC SYNDROME
     Route: 048
     Dates: start: 20190308, end: 2019
  3. VIDAZA [Suspect]
     Active Substance: AZACITIDINE
     Indication: PRODUCT USED FOR UNKNOWN INDICATION
     Route: 065

REACTIONS (8)
  - Haemoglobin decreased [Unknown]
  - Limb mass [Unknown]
  - Peripheral swelling [Unknown]
  - Red blood cell count decreased [Unknown]
  - White blood cell count decreased [Unknown]
  - Fatigue [Unknown]
  - Abdominal distension [Unknown]
  - Off label use [Unknown]

NARRATIVE: CASE EVENT DATE: 2019
